FAERS Safety Report 11064708 (Version 1)
Quarter: 2015Q2

REPORT INFORMATION
  Report Type: Report from Study
  Country: JP (occurrence: JP)
  Receive Date: 20150424
  Receipt Date: 20150424
  Transmission Date: 20150821
  Serious: Yes (Other)
  Sender: FDA-Public Use
  Company Number: JP-009507513-1504JPN021609

PATIENT
  Age: 54 Year
  Sex: Male
  Weight: 56 kg

DRUGS (5)
  1. PEGINTRON [Suspect]
     Active Substance: PEGINTERFERON ALFA-2B
     Dosage: 80 MICROGRAM, QW
     Route: 058
     Dates: start: 20140829
  2. PEGINTRON [Suspect]
     Active Substance: PEGINTERFERON ALFA-2B
     Dosage: 60 MICROGRAM, QW
     Route: 058
     Dates: start: 20140815, end: 20140822
  3. RIBAVIRIN. [Suspect]
     Active Substance: RIBAVIRIN
     Indication: CHRONIC HEPATITIS C
     Dosage: 300 MG, QD
     Route: 048
     Dates: start: 20140606
  4. SIMEPREVIR [Suspect]
     Active Substance: SIMEPREVIR
     Indication: CHRONIC HEPATITIS C
     Dosage: 100 MG, QD
     Route: 048
     Dates: start: 20140606, end: 20140828
  5. PEGINTRON [Suspect]
     Active Substance: PEGINTERFERON ALFA-2B
     Indication: CHRONIC HEPATITIS C
     Dosage: 80 MICROGRAM, QW
     Route: 058
     Dates: start: 20140606, end: 20140808

REACTIONS (9)
  - Thyroid disorder [Not Recovered/Not Resolved]
  - Gastritis [Not Recovered/Not Resolved]
  - Neutrophil count decreased [Recovered/Resolved]
  - Pyrexia [Not Recovered/Not Resolved]
  - Eczema [Not Recovered/Not Resolved]
  - Gastroenteritis [Recovered/Resolved]
  - Insomnia [Unknown]
  - Back pain [Not Recovered/Not Resolved]
  - Pruritus [Not Recovered/Not Resolved]

NARRATIVE: CASE EVENT DATE: 20140606
